FAERS Safety Report 9197684 (Version 4)
Quarter: 2014Q2

REPORT INFORMATION
  Report Type: Spontaneous
  Country: US (occurrence: US)
  Receive Date: 20130328
  Receipt Date: 20140612
  Transmission Date: 20141212
  Serious: Yes (Hospitalization, Disabling, Other)
  Sender: FDA-Public Use
  Company Number: US-BAYER-2013-038049

PATIENT
  Age: 28 Year
  Sex: Female
  Weight: 63.49 kg

DRUGS (2)
  1. MIRENA [Suspect]
     Dosage: 20 MCG/24HR, CONT
     Route: 015
     Dates: start: 20051105, end: 20110427
  2. DEPO PROVERA [Concomitant]
     Indication: CONTRACEPTION
     Dosage: 150 MG, UNK
     Route: 030
     Dates: start: 200909

REACTIONS (11)
  - Uterine perforation [None]
  - Pregnancy with contraceptive device [None]
  - Vaginal haemorrhage [Recovered/Resolved]
  - Haemorrhage in pregnancy [None]
  - Pain [None]
  - Injury [None]
  - Device misuse [None]
  - Drug ineffective [None]
  - Emotional distress [None]
  - Anxiety [None]
  - Device issue [None]
